FAERS Safety Report 18024543 (Version 2)
Quarter: 2020Q3

REPORT INFORMATION
  Report Type: Spontaneous
  Country: US (occurrence: US)
  Receive Date: 20200714
  Receipt Date: 20200916
  Transmission Date: 20201103
  Serious: No
  Sender: FDA-Public Use
  Company Number: US-ASTRAZENECA-2020SE86787

PATIENT
  Sex: Female

DRUGS (1)
  1. SYMBICORT [Suspect]
     Active Substance: BUDESONIDE\FORMOTEROL FUMARATE DIHYDRATE
     Dosage: 160/4.5 MCG 120 INHALATIONS UNKNOWN
     Route: 055
     Dates: start: 2019

REACTIONS (8)
  - Dysphonia [Unknown]
  - Oropharyngeal pain [Unknown]
  - Product odour abnormal [Unknown]
  - Abdominal discomfort [Unknown]
  - Headache [Unknown]
  - Feeling abnormal [Unknown]
  - Product taste abnormal [Unknown]
  - Oral pain [Unknown]

NARRATIVE: CASE EVENT DATE: 20200622
